FAERS Safety Report 9016808 (Version 3)
Quarter: 2015Q2

REPORT INFORMATION
  Report Type: Spontaneous
  Country: US (occurrence: US)
  Receive Date: 20130117
  Receipt Date: 20150524
  Transmission Date: 20150821
  Serious: No
  Sender: FDA-Public Use
  Company Number: US-JNJFOC-20130100850

PATIENT
  Age: 64 Year
  Sex: Male
  Weight: 79.38 kg

DRUGS (17)
  1. TRICOR [Concomitant]
     Active Substance: FENOFIBRATE
     Indication: HYPERTENSION
     Dosage: ONCE DAILY
     Route: 048
  2. NUCYNTA ER [Suspect]
     Active Substance: TAPENTADOL HYDROCHLORIDE
     Indication: PAIN
     Dosage: 3 TIMES A DAY
     Route: 048
     Dates: start: 20121214, end: 201212
  3. OMEPRAZOLE. [Concomitant]
     Active Substance: OMEPRAZOLE
     Dosage: ONCE DAILY
     Route: 048
  4. HYDROCHLOROTHIAZIDE. [Concomitant]
     Active Substance: HYDROCHLOROTHIAZIDE
     Dosage: ONCE DAILY
     Route: 048
  5. METOPROLOL [Concomitant]
     Active Substance: METOPROLOL
     Dosage: ONCE DAILY
     Route: 048
  6. LOVAZA [Concomitant]
     Active Substance: OMEGA-3-ACID ETHYL ESTERS
     Route: 065
  7. PROSOM [Concomitant]
     Active Substance: ESTAZOLAM
     Indication: SLEEP DISORDER THERAPY
     Route: 065
  8. NUCYNTA ER [Suspect]
     Active Substance: TAPENTADOL HYDROCHLORIDE
     Indication: PAIN
     Dosage: 5 TIMES A DAY
     Route: 048
     Dates: start: 201212, end: 201212
  9. NIASPAN [Concomitant]
     Active Substance: NIACIN
     Dosage: ONCE DAILY
     Route: 048
  10. ANDROGEL [Concomitant]
     Active Substance: TESTOSTERONE
     Indication: BLOOD TESTOSTERONE ABNORMAL
     Route: 065
  11. LEVOTHYROXINE [Concomitant]
     Active Substance: LEVOTHYROXINE
     Indication: THYROID DISORDER
     Dosage: ONCE DAILY
     Route: 048
  12. BACLOFEN. [Concomitant]
     Active Substance: BACLOFEN
     Dosage: ONCE DAILY
     Route: 048
  13. FENTANYL TRANSDERMAL SYSTEM [Suspect]
     Active Substance: FENTANYL
     Indication: PAIN
     Dosage: ONCE EVERY 72 HOURS
     Route: 062
     Dates: end: 20121214
  14. XARELTO [Concomitant]
     Active Substance: RIVAROXABAN
     Indication: ATRIAL FIBRILLATION
     Dosage: ONCE DAILY
     Route: 048
  15. LORAZEPAM. [Concomitant]
     Active Substance: LORAZEPAM
     Indication: ANXIETY
     Dosage: ONCE DAILY
     Route: 048
  16. LISINOPRIL. [Concomitant]
     Active Substance: LISINOPRIL
     Dosage: ONCE DAILY
     Route: 048
  17. GABAPENTIN. [Concomitant]
     Active Substance: GABAPENTIN
     Dosage: ONCE DAILY
     Route: 048

REACTIONS (14)
  - Sleep disorder [Recovered/Resolved]
  - Dry mouth [Recovered/Resolved]
  - Drug prescribing error [Recovered/Resolved]
  - Flushing [Recovered/Resolved]
  - Mental impairment [Not Recovered/Not Resolved]
  - Gait disturbance [Recovered/Resolved]
  - Memory impairment [Unknown]
  - Dizziness [Recovered/Resolved]
  - Dysgeusia [Recovered/Resolved]
  - Withdrawal syndrome [Recovered/Resolved]
  - Overdose [Recovered/Resolved]
  - Drug ineffective [Recovered/Resolved]
  - Activities of daily living impaired [Unknown]
  - Mydriasis [Unknown]

NARRATIVE: CASE EVENT DATE: 20121214
